FAERS Safety Report 11707812 (Version 1)
Quarter: 2015Q4

REPORT INFORMATION
  Report Type: Spontaneous
  Country: US (occurrence: US)
  Receive Date: 20151104
  Receipt Date: 20151104
  Transmission Date: 20160304
  Serious: No
  Sender: FDA-Public Use
  Company Number: US-ELI_LILLY_AND_COMPANY-US201108002178

PATIENT
  Age: 76 Year
  Sex: Female

DRUGS (1)
  1. FORTEO [Suspect]
     Active Substance: TERIPARATIDE
     Indication: OSTEOPOROSIS
     Dosage: 20 UG, QD
     Dates: start: 201004

REACTIONS (9)
  - Proctitis [Not Recovered/Not Resolved]
  - Frequent bowel movements [Unknown]
  - Anorectal discomfort [Unknown]
  - Abdominal discomfort [Unknown]
  - Gastritis [Recovered/Resolved]
  - Tooth discolouration [Unknown]
  - Rectal discharge [Unknown]
  - Discomfort [Unknown]
  - Rectal haemorrhage [Unknown]

NARRATIVE: CASE EVENT DATE: 201101
